FAERS Safety Report 10905894 (Version 1)
Quarter: 2015Q1

REPORT INFORMATION
  Report Type: Report from Study
  Country: US (occurrence: US)
  Receive Date: 20150311
  Receipt Date: 20150311
  Transmission Date: 20150721
  Serious: Yes (Hospitalization)
  Sender: FDA-Public Use
  Company Number: US-SA-2013SA102480

PATIENT
  Age: 74 Year
  Sex: Male
  Weight: 73.89 kg

DRUGS (10)
  1. SIMVASTATIN. [Concomitant]
     Active Substance: SIMVASTATIN
     Indication: DYSLIPIDAEMIA
  2. CARVEDILOL. [Concomitant]
     Active Substance: CARVEDILOL
     Indication: CARDIAC FAILURE CONGESTIVE
  3. PLAVIX [Suspect]
     Active Substance: CLOPIDOGREL BISULFATE
     Indication: ANTIPLATELET THERAPY
     Route: 048
     Dates: start: 20110518
  4. ASPIRIN. [Suspect]
     Active Substance: ASPIRIN
     Indication: ANTIPLATELET THERAPY
     Route: 048
     Dates: start: 20110215, end: 20111110
  5. ENALAPRIL [Concomitant]
     Active Substance: ENALAPRIL
     Indication: HYPERTENSION
  6. ASPIRIN. [Suspect]
     Active Substance: ASPIRIN
     Indication: ANTIPLATELET THERAPY
     Route: 048
     Dates: start: 20111110
  7. BLINDED THERAPY [Suspect]
     Active Substance: INVESTIGATIONAL PRODUCT
     Indication: ANTIPLATELET THERAPY
     Route: 048
     Dates: start: 20120412
  8. BARE METAL STENT [Concomitant]
     Active Substance: UNSPECIFIED INGREDIENT
  9. PLAVIX [Suspect]
     Active Substance: CLOPIDOGREL BISULFATE
     Indication: ANTIPLATELET THERAPY
     Route: 048
     Dates: start: 20110517, end: 20110517
  10. ENALAPRIL [Concomitant]
     Active Substance: ENALAPRIL
     Indication: CARDIAC FAILURE CONGESTIVE

REACTIONS (1)
  - Disorientation [Recovered/Resolved]

NARRATIVE: CASE EVENT DATE: 201304
